FAERS Safety Report 6622175-6 (Version None)
Quarter: 2010Q1

REPORT INFORMATION
  Report Type: 
  Country: None (occurrence: None)
  Receive Date: 20100305
  Receipt Date: 20100219
  Transmission Date: 20100710
  Serious: Yes (Death, Other)
  Sender: FDA-Public Use
  Company Number: A-NJ2009-25775

PATIENT
  Age: 66 Year
  Sex: Female

DRUGS (2)
  1. TRACLEER [Suspect]
     Indication: PULMONARY ARTERIAL HYPERTENSION
     Dosage: ORAL
     Route: 048
     Dates: start: 20081114, end: 20100101
  2. REVATIO [Concomitant]

REACTIONS (6)
  - FATIGUE [None]
  - MALAISE [None]
  - NASOPHARYNGITIS [None]
  - PRODUCTIVE COUGH [None]
  - RHINORRHOEA [None]
  - SYNCOPE [None]
